FAERS Safety Report 17237938 (Version 1)
Quarter: 2020Q1

REPORT INFORMATION
  Report Type: Report from Study
  Country: GB (occurrence: GB)
  Receive Date: 20200106
  Receipt Date: 20200106
  Transmission Date: 20200409
  Serious: Yes (Other)
  Sender: FDA-Public Use
  Company Number: GB-PACIRA-201900291

PATIENT
  Age: 81 Year

DRUGS (4)
  1. BUPIVACAINE HYDROCHLORIDE. [Suspect]
     Active Substance: BUPIVACAINE HYDROCHLORIDE
     Indication: POSTOPERATIVE ANALGESIA
     Route: 052
     Dates: start: 20190907, end: 20190907
  2. CEFUROXIME. [Concomitant]
     Active Substance: CEFUROXIME
     Indication: ANTIBIOTIC PROPHYLAXIS
     Dosage: 750 MG 2 DOSES TOTAL
     Route: 042
     Dates: start: 20190907
  3. EXPAREL [Suspect]
     Active Substance: BUPIVACAINE
     Indication: POSTOPERATIVE ANALGESIA
     Dosage: N/A PATIENT RECEIVED CONTROL DRUG ONLY
  4. PARACETAMOL [Concomitant]
     Active Substance: ACETAMINOPHEN
     Indication: ANALGESIC THERAPY
     Dosage: 500 MG 6 HOURLY
     Route: 048
     Dates: start: 20190907

REACTIONS (1)
  - Confusion postoperative [Not Recovered/Not Resolved]

NARRATIVE: CASE EVENT DATE: 20190908
